FAERS Safety Report 10865890 (Version 2)
Quarter: 2015Q1

REPORT INFORMATION
  Report Type: Report from Study
  Country: BR (occurrence: BR)
  Receive Date: 20150224
  Receipt Date: 20150326
  Transmission Date: 20150721
  Serious: Yes (Other)
  Sender: FDA-Public Use
  Company Number: PHHY2015BR021856

PATIENT
  Sex: Female
  Weight: 49 kg

DRUGS (3)
  1. EXODUS//ESCITALOPRAM OXALATE [Concomitant]
     Active Substance: ESCITALOPRAM OXALATE
     Indication: ANXIETY
     Dosage: 1 DF, QD
     Route: 048
  2. LABIRIN [Concomitant]
     Active Substance: BETAHISTINE
     Indication: LABYRINTHITIS
     Dosage: 1 DF, UNK
     Route: 048
  3. ACLASTA [Suspect]
     Active Substance: ZOLEDRONIC ACID
     Indication: OSTEOPOROSIS
     Dosage: 1 DF, YEARLY
     Route: 042
     Dates: start: 2014

REACTIONS (2)
  - Cerumen impaction [Recovered/Resolved]
  - Labyrinthitis [Recovering/Resolving]
